FAERS Safety Report 8812673 (Version 1)
Quarter: 2012Q4

REPORT INFORMATION
  Report Type: 
  Country: GB (occurrence: GB)
  Receive Date: 20120927
  Receipt Date: 20120927
  Transmission Date: 20130627
  Serious: Yes (Other)
  Sender: FDA-Public Use
  Company Number: PHHY2012GB082051

PATIENT
  Age: 55 Year
  Sex: Male
  Weight: 117 kg

DRUGS (19)
  1. TAMSULOSIN [Suspect]
     Indication: BENIGN PROSTATIC HYPERPLASIA
     Dosage: 400 ug, UNK
     Route: 048
     Dates: start: 20120822, end: 20120905
  2. ASPIRIN [Concomitant]
  3. ATORVASTATIN [Concomitant]
  4. BISOPROLOL [Concomitant]
  5. CLOPIDOGREL [Concomitant]
  6. DIHYDROCODEINE [Concomitant]
  7. DIAZEPAM [Concomitant]
  8. DULOXETINE [Concomitant]
  9. FENTANYL [Concomitant]
  10. FUROSEMIDE [Concomitant]
  11. LIDOCAINE [Concomitant]
  12. GTN [Concomitant]
  13. LANSOPRAZOLE [Concomitant]
  14. LIRAGLUTIDE [Concomitant]
  15. METOCLOPRAMIDE HYDROCHLORIDE [Concomitant]
  16. NICORANDIL [Concomitant]
  17. NOVOMIX [Concomitant]
  18. RAMIPRIL [Concomitant]
  19. THIAMINE [Concomitant]

REACTIONS (2)
  - Diabetes mellitus inadequate control [Recovered/Resolved]
  - Blood glucose increased [Recovered/Resolved]
